FAERS Safety Report 16534265 (Version 5)
Quarter: 2019Q3

REPORT INFORMATION
  Report Type: Spontaneous
  Country: JP (occurrence: JP)
  Receive Date: 20190705
  Receipt Date: 20190917
  Transmission Date: 20191004
  Serious: Yes (Life-Threatening, Hospitalization, Other)
  Sender: FDA-Public Use
  Company Number: JP-VIIV HEALTHCARE LIMITED-JP2019JPN119730

PATIENT
  Age: 68 Year
  Sex: Male
  Weight: 58 kg

DRUGS (4)
  1. ZIAGEN [Suspect]
     Active Substance: ABACAVIR SULFATE
     Indication: HIV INFECTION
     Dosage: UNK
     Route: 048
  2. METGLUCO [Concomitant]
     Active Substance: METFORMIN HYDROCHLORIDE
     Dosage: 250 MG, BID
  3. EPZICOM [Suspect]
     Active Substance: ABACAVIR SULFATE\LAMIVUDINE
     Indication: HIV INFECTION
     Dosage: 1 DF, QD
     Route: 048
     Dates: start: 20140512, end: 20190702
  4. TIVICAY [Suspect]
     Active Substance: DOLUTEGRAVIR SODIUM
     Indication: HIV INFECTION
     Dosage: 50 MG, QD
     Route: 048
     Dates: start: 20140512, end: 20190702

REACTIONS (8)
  - Spinal compression fracture [Recovered/Resolved with Sequelae]
  - Feelings of worthlessness [Unknown]
  - Foot fracture [Recovered/Resolved with Sequelae]
  - Spinal fracture [Recovered/Resolved with Sequelae]
  - Retroperitoneal haemorrhage [Recovered/Resolved with Sequelae]
  - Suicide attempt [Recovered/Resolved with Sequelae]
  - Depressed mood [Unknown]
  - Suicidal ideation [Unknown]

NARRATIVE: CASE EVENT DATE: 20190608
